FAERS Safety Report 4980636-X (Version None)
Quarter: 2006Q2

REPORT INFORMATION
  Report Type: 
  Country: None (occurrence: None)
  Receive Date: 20060424
  Receipt Date: 20050926
  Transmission Date: 20061013
  Serious: Yes (Hospitalization)
  Sender: FDA-Public Use
  Company Number: US-MERCK-0509USA03775

PATIENT
  Age: 47 Year
  Sex: Male

DRUGS (2)
  1. VIOXX [Suspect]
     Route: 048
     Dates: start: 20010412, end: 20010418
  2. VIOXX [Suspect]
     Route: 048
     Dates: start: 20010502, end: 20010515

REACTIONS (5)
  - CARDIOVASCULAR DISORDER [None]
  - MYOCARDIAL INFARCTION [None]
  - POSTINFARCTION ANGINA [None]
  - SINUS TACHYCARDIA [None]
  - THROMBOSIS [None]
